FAERS Safety Report 20590553 (Version 2)
Quarter: 2022Q2

REPORT INFORMATION
  Report Type: Spontaneous
  Country: AU (occurrence: AU)
  Receive Date: 20220314
  Receipt Date: 20220511
  Transmission Date: 20220721
  Serious: Yes (Other)
  Sender: FDA-Public Use
  Company Number: AU-002147023-NVSC2022AU044229

PATIENT
  Sex: Female

DRUGS (1)
  1. XOLAIR [Suspect]
     Active Substance: OMALIZUMAB
     Indication: Product used for unknown indication
     Dosage: 600 MG
     Route: 065

REACTIONS (14)
  - Abdominal pain [Unknown]
  - Lip swelling [Unknown]
  - Swollen tongue [Unknown]
  - Pharyngeal swelling [Unknown]
  - Vocal cord dysfunction [Unknown]
  - Throat irritation [Not Recovered/Not Resolved]
  - Dyspnoea [Unknown]
  - Constipation [Unknown]
  - Pain [Unknown]
  - Gait disturbance [Unknown]
  - Diarrhoea [Unknown]
  - Influenza [Unknown]
  - Fatigue [Unknown]
  - Headache [Unknown]
